FAERS Safety Report 7769306-2 (Version None)
Quarter: 2011Q3

REPORT INFORMATION
  Report Type: 
  Country: None (occurrence: None)
  Receive Date: 20110922
  Receipt Date: 20110921
  Transmission Date: 20111222
  Serious: Yes (Death, Other)
  Sender: FDA-Public Use
  Company Number: JP-B.I. PHARMACEUTICALS,INC./RIDGEFIELD-2011-BP-21982NB

PATIENT
  Sex: Male
  Weight: 73.5 kg

DRUGS (9)
  1. NESINA [Concomitant]
     Indication: DIABETES MELLITUS
     Dosage: 25 MG
     Route: 048
  2. PRADAXA [Suspect]
     Indication: ATRIAL FIBRILLATION
     Dosage: 220 MG
     Route: 048
     Dates: start: 20110824, end: 20110912
  3. ROZEREM [Concomitant]
     Indication: INSOMNIA
     Dosage: 8 MG
     Route: 048
  4. PRADAXA [Suspect]
     Dosage: 300 MG
     Route: 048
     Dates: start: 20010714, end: 20110821
  5. LIPIDIL [Concomitant]
     Indication: HYPERLIPIDAEMIA
     Dosage: 200 MG
     Route: 048
  6. EPALRESTAT [Concomitant]
     Indication: DIABETIC NEUROPATHY
     Dosage: 150 MG
     Route: 048
  7. MIGLITOL [Concomitant]
     Indication: DIABETES MELLITUS
     Dosage: 150 MG
     Route: 048
  8. LOSARTAN POTASSIUM AND HYDROCHLOROTHIAZIDE [Concomitant]
     Indication: HYPERTENSION
     Route: 048
  9. ALLOPURINOL [Concomitant]
     Indication: HYPERURICAEMIA
     Dosage: 100 MG
     Route: 048

REACTIONS (3)
  - SEPTIC SHOCK [None]
  - NECROTISING COLITIS [None]
  - GASTROINTESTINAL HAEMORRHAGE [None]
